FAERS Safety Report 8789540 (Version 1)
Quarter: 2012Q4

REPORT INFORMATION
  Report Type: Spontaneous
  Country: US (occurrence: None)
  Receive Date: 20120910
  Receipt Date: 20120910
  Transmission Date: 20130627
  Serious: No
  Sender: FDA-Public Use
  Company Number: None

PATIENT
  Age: 36 Year
  Sex: Male
  Weight: 95.26 kg

DRUGS (1)
  1. CLEAR EYES REDNESS RELIEF [Suspect]
     Indication: RED EYE
     Dates: start: 20120906, end: 20120906

REACTIONS (2)
  - Product quality issue [None]
  - Application site pain [None]
